FAERS Safety Report 17533194 (Version 2)
Quarter: 2020Q1

REPORT INFORMATION
  Report Type: Report from Study
  Country: NL (occurrence: NL)
  Receive Date: 20200312
  Receipt Date: 20200321
  Transmission Date: 20200409
  Serious: Yes (Hospitalization, Other)
  Sender: FDA-Public Use
  Company Number: NL-AMGEN-NLDSL2019090957

PATIENT
  Age: 80 Year
  Sex: Male

DRUGS (39)
  1. XGEVA [Suspect]
     Active Substance: DENOSUMAB
     Dosage: UNK UNK, UNK
     Route: 065
  2. PANTOPRAZOLE [Concomitant]
     Active Substance: PANTOPRAZOLE
     Dosage: 20 MILLIGRAM, 2D1T
  3. PRAVASTATIN. [Concomitant]
     Active Substance: PRAVASTATIN
     Dosage: 40 MILLIGRAM, 1D1T
  4. TRIAMCINOLONACETONIDE [Concomitant]
     Active Substance: TRIAMCINOLONE ACETONIDE
     Dosage: 1MG/G
  5. PREGABALINE [Concomitant]
     Active Substance: PREGABALIN
     Dosage: 75 MILLIGRAM, BID
  6. XGEVA [Suspect]
     Active Substance: DENOSUMAB
     Indication: PROPHYLAXIS
     Dosage: 120 MILLIGRAM/1,7ML, Q4WK
     Route: 065
     Dates: start: 20190507
  7. PANTOPRAZOLE [Concomitant]
     Active Substance: PANTOPRAZOLE
     Dosage: 40 MILLIGRAM, 1D1T
  8. PREDNISOLON [PREDNISOLONE] [Concomitant]
     Active Substance: PREDNISOLONE
     Dosage: 50 MILLIGRAM, 2D1T
  9. FENTANYL. [Concomitant]
     Active Substance: FENTANYL
     Dosage: 50UG/HR (GENERIC+DUROGESIC), 1X3D1PL
  10. PREDNISOLON [PREDNISOLONE] [Concomitant]
     Active Substance: PREDNISOLONE
     Dosage: 5 MILLIGRAM, 2D1T
  11. OXYCODON [Concomitant]
     Active Substance: OXYCODONE
     Dosage: 10 MILLIGRAM,6D
  12. ALGELDRAAT [Concomitant]
     Dosage: 40 MILLIGRAM PER MILLILITRE, WHEN NEEDED 3D115ML
     Route: 048
  13. XGEVA [Suspect]
     Active Substance: DENOSUMAB
     Dosage: 120 MILLIGRAM//1,7ML, Q4WK
     Route: 065
  14. MOMETASON [Concomitant]
     Active Substance: MOMETASONE FUROATE
     Dosage: 50UG/DO FL 140DO 2D1S
  15. OXYCODON [Concomitant]
     Active Substance: OXYCODONE
     Dosage: 5 MILLIGRAM, 0-6XD 1T
  16. MICONAZOL [MICONAZOLE] [Concomitant]
     Dosage: 20 MILLIGRAM PER GRAM,3D
  17. LOPERAMIDE [Concomitant]
     Active Substance: LOPERAMIDE
     Dosage: 2 MILLIGRAM, WHEN NEEDED 1-4D1T
  18. XGEVA [Suspect]
     Active Substance: DENOSUMAB
     Dosage: 120 MILLIGRAM PER MILLILITRE, Q4WK
     Route: 065
     Dates: start: 20190507
  19. ACETYLSALICYLIC ACID [Concomitant]
     Active Substance: ASPIRIN
     Dosage: 80 MILLIGRAM, QD
  20. CALCIUM CARBONATE W/COLECALCIFEROL [Concomitant]
     Active Substance: CALCIUM CARBONATE\CHOLECALCIFEROL
     Dosage: UNK2,5G/880IE (1000MG CA), , QD
  21. DEGARELIX [Concomitant]
     Active Substance: DEGARELIX
     Dosage: 80 MILLIGRAM FL TOEB, QMO
  22. FUSIDINE [Concomitant]
     Dosage: 20MG/G 3D
  23. MACROGOL [Concomitant]
     Active Substance: POLYETHYLENE GLYCOLS
     Dosage: (MOVIC/MOLAX/LAXT/GEN) 1-2XD 1S
  24. MAGNESIUMHYDROXIDE [Concomitant]
     Dosage: 20 MILLIGRAM PER MILLILITRE, WHEN NEEDED 3D115ML
     Route: 048
  25. METOCLOPRAMIDE. [Concomitant]
     Active Substance: METOCLOPRAMIDE
     Dosage: 10 MILLIGRAM, QD, WHEN NEEDED
  26. CANDESARTAN+HYDROCHLOROTHIAZIDE [Concomitant]
     Active Substance: CANDESARTAN CILEXETIL\HYDROCHLOROTHIAZIDE
     Dosage: 16/12,5MG, QD
  27. DEXTRAN 70;HYPROMELLOSE [Concomitant]
     Dosage: 1/3MG/ML FL 15ML 3D1DR
  28. ENZALUTAMIDE [Concomitant]
     Active Substance: ENZALUTAMIDE
     Dosage: 40 MILLIGRAM, 1D4C
  29. MACROGOL + ELECTROLYTES SANDOZ [Concomitant]
     Dosage: 1-D1S
  30. OFLOXACINE [Concomitant]
     Active Substance: OFLOXACIN
     Dosage: 3MG/ML FL 5ML 3D1DR
  31. FENTANYL. [Concomitant]
     Active Substance: FENTANYL
     Dosage: 25UG/HR (GENERIC+DUROGESIC) 1X PER 3D 1PLASTER
  32. ABIRATERONA [Concomitant]
     Active Substance: ABIRATERONE
     Dosage: 500 MILLIGRAM, BID
  33. AMLODIPINE [Concomitant]
     Active Substance: AMLODIPINE BESYLATE
     Dosage: 5 MILLIGRAM, QD
  34. CANDESARTAN. [Concomitant]
     Active Substance: CANDESARTAN
     Dosage: 16 MILLIGRAM, QD
  35. NAPROXEN. [Concomitant]
     Active Substance: NAPROXEN
     Dosage: 500 MILLIGRAM, 2D1T
  36. ALGELDRAAT [Concomitant]
     Dosage: UNK
  37. DUTASTERIDE;TAMSULOSIN [Concomitant]
     Dosage: 0,5/0,4MG, QD
  38. CANDESARTAN. [Concomitant]
     Active Substance: CANDESARTAN
     Dosage: 8 MILLIGRAM
  39. HYDROCHLOORTHIAZIDE [Concomitant]
     Active Substance: HYDROCHLOROTHIAZIDE
     Dosage: 12.5 MILLIGRAM, QD

REACTIONS (5)
  - Pneumonitis [Unknown]
  - Arthralgia [Unknown]
  - Osteonecrosis of jaw [Unknown]
  - Neoplasm progression [Unknown]
  - Osteitis [Unknown]

NARRATIVE: CASE EVENT DATE: 2019
